FAERS Safety Report 19816792 (Version 2)
Quarter: 2022Q1

REPORT INFORMATION
  Report Type: Spontaneous
  Country: US (occurrence: US)
  Receive Date: 20210910
  Receipt Date: 20220119
  Transmission Date: 20220423
  Serious: No
  Sender: FDA-Public Use
  Company Number: US-SA-SAC20210908000674

PATIENT
  Age: 52 Year
  Sex: Male

DRUGS (1)
  1. DUPIXENT [Suspect]
     Active Substance: DUPILUMAB
     Indication: Dermatitis atopic
     Dosage: 300 MG, QOW
     Route: 058
     Dates: start: 201911

REACTIONS (2)
  - Skin hyperpigmentation [Unknown]
  - Condition aggravated [Unknown]

NARRATIVE: CASE EVENT DATE: 20200901
